FAERS Safety Report 22861434 (Version 2)
Quarter: 2023Q4

REPORT INFORMATION
  Report Type: Spontaneous
  Country: JP (occurrence: JP)
  Receive Date: 20230824
  Receipt Date: 20231003
  Transmission Date: 20240110
  Serious: Yes (Other)
  Sender: FDA-Public Use
  Company Number: JP-BAYER-2023A117884

PATIENT
  Age: 7 Decade
  Sex: Male

DRUGS (4)
  1. NUBEQA [Suspect]
     Active Substance: DAROLUTAMIDE
     Indication: Hormone-dependent prostate cancer
     Dosage: 600 MG, BID
     Route: 048
     Dates: start: 20230612, end: 20230829
  2. NUBEQA [Suspect]
     Active Substance: DAROLUTAMIDE
     Indication: Hormone-dependent prostate cancer
     Dosage: DAILY DOSE 600 MG
     Route: 048
     Dates: start: 20230830, end: 20230912
  3. DOCETAXEL [Concomitant]
     Active Substance: DOCETAXEL
     Dosage: 70MG/M2
  4. DOCETAXEL [Concomitant]
     Active Substance: DOCETAXEL
     Dosage: 50MG/M2

REACTIONS (2)
  - Liver disorder [Recovered/Resolved]
  - Alanine aminotransferase increased [Recovered/Resolved]

NARRATIVE: CASE EVENT DATE: 20230815
